FAERS Safety Report 4392496-9 (Version None)
Quarter: 2004Q3

REPORT INFORMATION
  Report Type: 
  Country: None (occurrence: None)
  Receive Date: 20040702
  Receipt Date: 20040621
  Transmission Date: 20050211
  Serious: Yes (Hospitalization)
  Sender: FDA-Public Use
  Company Number: US-JNJFOC-20040502303

PATIENT
  Age: 43 Year
  Sex: Male
  Weight: 99.7913 kg

DRUGS (5)
  1. REMICADE [Suspect]
     Indication: CROHN'S DISEASE
     Dosage: 500 MG, INTRAVENOUS
     Route: 042
     Dates: start: 20040426
  2. DEMEROL [Concomitant]
  3. ACETAMINOPHEN [Concomitant]
  4. DIPHENHYDRAMINE [Concomitant]
  5. PREDNISONE [Concomitant]

REACTIONS (12)
  - ABDOMINAL PAIN [None]
  - ARTHRALGIA [None]
  - BACK PAIN [None]
  - BLOOD PRESSURE INCREASED [None]
  - CHEST PAIN [None]
  - DRUG HYPERSENSITIVITY [None]
  - EYE PAIN [None]
  - EYE REDNESS [None]
  - INFUSION RELATED REACTION [None]
  - PAIN [None]
  - PYREXIA [None]
  - SERUM SICKNESS [None]
